FAERS Safety Report 13341924 (Version 1)
Quarter: 2017Q1

REPORT INFORMATION
  Report Type: Spontaneous
  Country: US (occurrence: US)
  Receive Date: 20170315
  Receipt Date: 20170315
  Transmission Date: 20170428
  Serious: Yes (Hospitalization)
  Sender: FDA-Public Use
  Company Number: None

PATIENT
  Age: 73 Year
  Sex: Female

DRUGS (10)
  1. OXYCODONE [Concomitant]
     Active Substance: OXYCODONE
  2. LOSARTAN. [Concomitant]
     Active Substance: LOSARTAN
  3. ACETAMINOPHEN. [Concomitant]
     Active Substance: ACETAMINOPHEN
  4. ALENDRONATE [Concomitant]
     Active Substance: ALENDRONATE SODIUM
  5. HYDROXYZINE [Concomitant]
     Active Substance: HYDROXYZINE HYDROCHLORIDE
  6. RITUXIMAB [Concomitant]
     Active Substance: RITUXIMAB
  7. LENALIDOMIDE [Concomitant]
     Active Substance: LENALIDOMIDE
  8. REVLIMID [Suspect]
     Active Substance: LENALIDOMIDE
     Indication: MANTLE CELL LYMPHOMA
     Dosage: 10MG DAILY X 21DAYS ORAL
     Route: 048
     Dates: start: 20160128, end: 20170210
  9. FAMOTIDINE. [Concomitant]
     Active Substance: FAMOTIDINE
  10. BUSPIRONE [Concomitant]
     Active Substance: BUSPIRONE HYDROCHLORIDE

REACTIONS (4)
  - Transient ischaemic attack [None]
  - Sepsis [None]
  - Metabolic encephalopathy [None]
  - Urinary tract infection [None]

NARRATIVE: CASE EVENT DATE: 20170210
